FAERS Safety Report 5492456-0 (Version None)
Quarter: 2007Q4

REPORT INFORMATION
  Report Type: 
  Country: None (occurrence: None)
  Receive Date: 20071015
  Receipt Date: 20070810
  Transmission Date: 20080405
  Serious: No
  Sender: FDA-Public Use
  Company Number: 2007SP002821

PATIENT
  Age: 87 Year
  Sex: Male
  Weight: 65.7716 kg

DRUGS (2)
  1. LUNESTA [Suspect]
     Indication: INSOMNIA
     Dosage: 2 MG; HS;ORAL
     Route: 048
     Dates: start: 20070801
  2. FOSAMAX [Concomitant]

REACTIONS (1)
  - MIDDLE INSOMNIA [None]
